FAERS Safety Report 12849194 (Version 1)
Quarter: 2016Q4

REPORT INFORMATION
  Report Type: Spontaneous
  Country: NO (occurrence: NO)
  Receive Date: 20161014
  Receipt Date: 20161014
  Transmission Date: 20170207
  Serious: Yes (Other)
  Sender: FDA-Public Use
  Company Number: NO-009507513-1610NOR005949

PATIENT
  Age: 27 Year
  Sex: Female

DRUGS (1)
  1. NEXPLANON [Suspect]
     Active Substance: ETONOGESTREL
     Dosage: UNK
     Route: 059
     Dates: start: 20160902, end: 201610

REACTIONS (3)
  - Device expulsion [Recovered/Resolved]
  - Implant site discharge [Unknown]
  - Abscess bacterial [Unknown]

NARRATIVE: CASE EVENT DATE: 2016
